FAERS Safety Report 22914505 (Version 2)
Quarter: 2024Q2

REPORT INFORMATION
  Report Type: Report from Study
  Country: GR (occurrence: GR)
  Receive Date: 20230907
  Receipt Date: 20240522
  Transmission Date: 20240715
  Serious: Yes (Other)
  Sender: FDA-Public Use
  Company Number: GR-ABBVIE-5309966

PATIENT
  Age: 79 Year
  Sex: Female

DRUGS (6)
  1. CARBIDOPA\LEVODOPA [Suspect]
     Active Substance: CARBIDOPA\LEVODOPA
     Indication: Parkinson^s disease
     Dosage: MORNING DOSE: 11.5 ML; CONTINUOUS RATE: 2.5 ML/H; EXTRA DOSE: 1.5 ML (TWICE PER WEEK)
     Route: 050
     Dates: start: 20200303
  2. CARBIDOPA\LEVODOPA [Suspect]
     Active Substance: CARBIDOPA\LEVODOPA
     Dosage: MORNING DOSE: 11.2 ML; CONTINUOUS RATE: 2.4 ML/H; EXTRA DOSE: 1.5 ML (24-HOUR ADMINISTRATION)
     Route: 050
     Dates: start: 2023
  3. CARBIDOPA\LEVODOPA [Suspect]
     Active Substance: CARBIDOPA\LEVODOPA
     Dosage: MD: 11.2 ML; CR: 1.9 ML/H; ED: 1.5 ML (TWICE A WEEK 24-HOUR ADMINISTRATION)
     Route: 050
  4. REMERON [Concomitant]
     Active Substance: MIRTAZAPINE
     Indication: Product used for unknown indication
     Route: 048
  5. RABEPRAZOLE SODIUM [Concomitant]
     Active Substance: RABEPRAZOLE SODIUM
     Indication: Vomiting
     Route: 048
  6. XANAX [Concomitant]
     Active Substance: ALPRAZOLAM
     Indication: Product used for unknown indication
     Route: 048

REACTIONS (3)
  - Aortic valve stenosis [Not Recovered/Not Resolved]
  - Hypertension [Recovered/Resolved]
  - Aortic valve incompetence [Not Recovered/Not Resolved]

NARRATIVE: CASE EVENT DATE: 20230619
